FAERS Safety Report 9914864 (Version 2)
Quarter: 2014Q2

REPORT INFORMATION
  Report Type: Spontaneous
  Country: GB (occurrence: GB)
  Receive Date: 20140220
  Receipt Date: 20140410
  Transmission Date: 20141212
  Serious: Yes (Life-Threatening, Hospitalization)
  Sender: FDA-Public Use
  Company Number: GB-BAXTER-2014BAX008329

PATIENT
  Age: 35 Year
  Sex: Female
  Weight: 62 kg

DRUGS (6)
  1. GLUCOSE 5% INTRAVENOUS INFUSION BP [Suspect]
     Indication: MEDICATION DILUTION
     Route: 042
     Dates: start: 20140213, end: 20140213
  2. OXALIPLATIN [Suspect]
     Indication: CHEMOTHERAPY
     Route: 042
     Dates: start: 20140213, end: 20140213
  3. DEXAMETHASONE [Suspect]
     Indication: ANTIEMETIC SUPPORTIVE CARE
     Route: 048
     Dates: start: 20140213
  4. DEXAMETHASONE [Suspect]
     Indication: PREMEDICATION
  5. ONDANSETRON [Suspect]
     Indication: ANTIEMETIC SUPPORTIVE CARE
     Route: 042
     Dates: start: 20140213
  6. ONDANSETRON [Suspect]
     Indication: PREMEDICATION

REACTIONS (1)
  - Anaphylactic reaction [Recovered/Resolved]
